FAERS Safety Report 6537794-5 (Version None)
Quarter: 2010Q1

REPORT INFORMATION
  Report Type: 
  Country: None (occurrence: None)
  Receive Date: 20100114
  Receipt Date: 20100105
  Transmission Date: 20100710
  Serious: Yes (Other)
  Sender: FDA-Public Use
  Company Number: GB-PFIZER INC-2009287776

PATIENT
  Age: 62 Year
  Sex: Male
  Weight: 85 kg

DRUGS (1)
  1. ALDACTONE [Suspect]
     Indication: FLUID RETENTION
     Dosage: 50 MG, 1X/DAY
     Route: 048
     Dates: start: 20090505, end: 20091110

REACTIONS (4)
  - ABDOMINAL PAIN UPPER [None]
  - BREAST PAIN [None]
  - CONSTIPATION [None]
  - GYNAECOMASTIA [None]
